FAERS Safety Report 6834113-1 (Version None)
Quarter: 2010Q3

REPORT INFORMATION
  Report Type: 
  Country: None (occurrence: None)
  Receive Date: 20100712
  Receipt Date: 20070614
  Transmission Date: 20110219
  Serious: No
  Sender: FDA-Public Use
  Company Number: US-PFIZER INC-2007029143

PATIENT
  Sex: Female
  Weight: 83.01 kg

DRUGS (3)
  1. CHANTIX [Suspect]
     Indication: SMOKING CESSATION THERAPY
     Dates: start: 20070405
  2. PREDNISONE [Concomitant]
     Indication: BRONCHITIS
  3. ZITHROMAX [Concomitant]
     Indication: BRONCHITIS

REACTIONS (2)
  - MUSCLE FATIGUE [None]
  - MUSCULAR WEAKNESS [None]
